FAERS Safety Report 21775187 (Version 5)
Quarter: 2023Q4

REPORT INFORMATION
  Report Type: Spontaneous
  Country: JP (occurrence: JP)
  Receive Date: 20221225
  Receipt Date: 20231221
  Transmission Date: 20240109
  Serious: Yes (Other)
  Sender: FDA-Public Use
  Company Number: JP-002147023-NVSJ2022JP276621

PATIENT
  Age: 70 Year
  Sex: Male
  Weight: 63.2 kg

DRUGS (6)
  1. COSENTYX [Suspect]
     Active Substance: SECUKINUMAB
     Indication: Psoriasis
     Dosage: 300 MG
     Route: 058
     Dates: start: 20211028, end: 20211028
  2. COSENTYX [Suspect]
     Active Substance: SECUKINUMAB
     Indication: Hyperkeratosis
     Dosage: 300 MG
     Route: 058
     Dates: start: 20211104, end: 20211104
  3. COSENTYX [Suspect]
     Active Substance: SECUKINUMAB
     Indication: Nail atrophy
     Dosage: 300 MG
     Route: 058
  4. COSENTYX [Suspect]
     Active Substance: SECUKINUMAB
     Dosage: 300 MG
     Route: 058
  5. COSENTYX [Suspect]
     Active Substance: SECUKINUMAB
     Dosage: 300 MG
     Route: 058
  6. COSENTYX [Suspect]
     Active Substance: SECUKINUMAB
     Dosage: 300 MG
     Route: 058
     Dates: start: 20220127, end: 20220127

REACTIONS (4)
  - Interstitial lung disease [Not Recovered/Not Resolved]
  - KL-6 increased [Recovered/Resolved]
  - Cough [Recovered/Resolved]
  - Drug ineffective [Unknown]

NARRATIVE: CASE EVENT DATE: 20220210
